FAERS Safety Report 6216974-2 (Version None)
Quarter: 2009Q2

REPORT INFORMATION
  Report Type: 
  Country: None (occurrence: None)
  Receive Date: 20090604
  Receipt Date: 20090601
  Transmission Date: 20091009
  Serious: No
  Sender: FDA-Public Use
  Company Number: 20096637

PATIENT
  Sex: Male

DRUGS (1)
  1. LIORESAL [Suspect]
     Dosage: MCG, DAILY, INTRATHECAL

REACTIONS (8)
  - BACK PAIN [None]
  - CHEST PAIN [None]
  - DEVICE FAILURE [None]
  - DYSKINESIA [None]
  - DYSPNOEA [None]
  - MUSCLE SPASMS [None]
  - PAIN [None]
  - SPEECH DISORDER [None]
